FAERS Safety Report 25360530 (Version 2)
Quarter: 2025Q2

REPORT INFORMATION
  Report Type: Spontaneous
  Country: IT (occurrence: IT)
  Receive Date: 20250527
  Receipt Date: 20250529
  Transmission Date: 20250716
  Serious: Yes (Other)
  Sender: RECORDATI
  Company Number: IT-ORPHANEU-2025003631

PATIENT
  Sex: Female

DRUGS (16)
  1. DACTINOMYCIN [Suspect]
     Active Substance: DACTINOMYCIN
     Indication: Nephroblastoma
  2. DACTINOMYCIN [Suspect]
     Active Substance: DACTINOMYCIN
  3. DACTINOMYCIN [Suspect]
     Active Substance: DACTINOMYCIN
  4. DACTINOMYCIN [Suspect]
     Active Substance: DACTINOMYCIN
  5. VINCRISTINE [Suspect]
     Active Substance: VINCRISTINE
     Indication: Nephroblastoma
  6. VINCRISTINE [Suspect]
     Active Substance: VINCRISTINE
  7. VINCRISTINE [Suspect]
     Active Substance: VINCRISTINE
     Dosage: UNK UNK, QW FOR 5 WEEKS WITH ACTD
  8. VINCRISTINE [Suspect]
     Active Substance: VINCRISTINE
  9. ADRIAMYCIN [Suspect]
     Active Substance: DOXORUBICIN HYDROCHLORIDE
     Indication: Nephroblastoma
  10. ADRIAMYCIN [Suspect]
     Active Substance: DOXORUBICIN HYDROCHLORIDE
  11. IFOSFAMIDE [Suspect]
     Active Substance: IFOSFAMIDE
     Indication: Nephroblastoma
  12. IFOSFAMIDE [Suspect]
     Active Substance: IFOSFAMIDE
  13. CARBOPLATIN [Suspect]
     Active Substance: CARBOPLATIN
     Indication: Nephroblastoma
  14. ETOPOSIDE [Suspect]
     Active Substance: ETOPOSIDE
     Indication: Nephroblastoma
  15. TOPOTECAN [Suspect]
     Active Substance: TOPOTECAN HYDROCHLORIDE
     Indication: Nephroblastoma
  16. TEMOZOLOMIDE [Suspect]
     Active Substance: TEMOZOLOMIDE
     Indication: Nephroblastoma

REACTIONS (3)
  - Cardiac disorder [Unknown]
  - Tumour rupture [Recovered/Resolved]
  - Haemoperitoneum [Recovered/Resolved]
